FAERS Safety Report 4580508-9 (Version None)
Quarter: 2005Q1

REPORT INFORMATION
  Report Type: 
  Country: None (occurrence: None)
  Receive Date: 20050127
  Receipt Date: 20041028
  Transmission Date: 20050727
  Serious: No
  Sender: FDA-Public Use
  Company Number: USA040773823

PATIENT
  Age: 6 Year
  Sex: Female
  Weight: 50 kg

DRUGS (4)
  1. STRATTERA [Suspect]
     Indication: ATTENTION DEFICIT/HYPERACTIVITY DISORDER
     Dosage: 120 MG DAY
     Dates: start: 20030101, end: 20040902
  2. RISPERDAL [Concomitant]
  3. ZOLOFT [Concomitant]
  4. TENEX [Concomitant]

REACTIONS (3)
  - DRUG INEFFECTIVE [None]
  - NEURODERMATITIS [None]
  - PRESCRIBED OVERDOSE [None]
